FAERS Safety Report 8291147-0 (Version None)
Quarter: 2012Q2

REPORT INFORMATION
  Report Type: 
  Country: None (occurrence: None)
  Receive Date: 20120413
  Receipt Date: 20120411
  Transmission Date: 20120825
  Serious: Yes (Other)
  Sender: FDA-Public Use
  Company Number: ADR-2011-11246

PATIENT
  Sex: Female

DRUGS (1)
  1. LIORESAL [Suspect]
     Indication: MUSCLE SPASTICITY
     Dosage: MCG, DAILY, INTRATH
     Route: 037

REACTIONS (7)
  - PAIN [None]
  - FEELING ABNORMAL [None]
  - IMPLANT SITE REACTION [None]
  - HYPOTONIA [None]
  - UNDERDOSE [None]
  - DEVICE DISLOCATION [None]
  - ECONOMIC PROBLEM [None]
